FAERS Safety Report 9231051 (Version 2)
Quarter: 2013Q2

REPORT INFORMATION
  Report Type: Spontaneous
  Country: US (occurrence: None)
  Receive Date: 20121031
  Receipt Date: 20130107
  Transmission Date: 20140414
  Serious: Yes (Other)
  Sender: FDA-Public Use
  Company Number: PHEH2012US014604

PATIENT
  Age: 45 Year
  Sex: Female

DRUGS (1)
  1. GILENYA [Suspect]
     Indication: MULTIPLE SCLEROSIS
     Route: 048
     Dates: start: 20120724

REACTIONS (9)
  - Chills [None]
  - Discomfort [None]
  - Influenza like illness [None]
  - Pyrexia [None]
  - Abdominal discomfort [None]
  - Pain [None]
  - Nausea [None]
  - Dizziness [None]
  - Vomiting [None]
